FAERS Safety Report 5055165-8 (Version None)
Quarter: 2006Q3

REPORT INFORMATION
  Report Type: 
  Country: None (occurrence: None)
  Receive Date: 20060714
  Receipt Date: 20060703
  Transmission Date: 20061208
  Serious: Yes (Hospitalization)
  Sender: FDA-Public Use
  Company Number: 02100-JPN-06-0256

PATIENT
  Age: 52 Year
  Sex: Female

DRUGS (4)
  1. CILOSTAZOL [Suspect]
     Indication: CEREBRAL INFARCTION
     Dosage: 200  MG ORAL
     Route: 048
     Dates: start: 20060601, end: 20060605
  2. ATORVASTATIN CALCIUM HYDRATE [Concomitant]
  3. MAGNESIUM OXIDE [Concomitant]
  4. MEDICAL DIET [Concomitant]

REACTIONS (6)
  - ANOREXIA [None]
  - C-REACTIVE PROTEIN INCREASED [None]
  - LABORATORY TEST ABNORMAL [None]
  - MALAISE [None]
  - PYREXIA [None]
  - WHITE BLOOD CELL COUNT DECREASED [None]
